FAERS Safety Report 5762424-X (Version None)
Quarter: 2008Q2

REPORT INFORMATION
  Report Type: 
  Country: None (occurrence: None)
  Receive Date: 20080609
  Receipt Date: 20080604
  Transmission Date: 20081010
  Serious: Yes (Death)
  Sender: FDA-Public Use
  Company Number: US-JNJFOC-20080601602

PATIENT
  Sex: Female
  Weight: 77.11 kg

DRUGS (1)
  1. DURAGESIC-100 [Suspect]
     Indication: PAIN
     Dosage: 2 X 50 UG/HR AT UNKNOWN FREQUENCY
     Route: 062

REACTIONS (1)
  - ARRHYTHMIA [None]
